FAERS Safety Report 19661068 (Version 1)
Quarter: 2021Q3

REPORT INFORMATION
  Report Type: Spontaneous
  Country: HR (occurrence: HR)
  Receive Date: 20210805
  Receipt Date: 20210805
  Transmission Date: 20211014
  Serious: Yes (Other)
  Sender: FDA-Public Use
  Company Number: HR-TEVA-2021-HR-1938874

PATIENT
  Sex: Female

DRUGS (3)
  1. DIAZEPAM. [Suspect]
     Active Substance: DIAZEPAM
     Dosage: 200 MG
     Route: 048
     Dates: start: 202104, end: 202104
  2. RISSET [Suspect]
     Active Substance: RISPERIDONE
     Dosage: 20 MG
     Route: 048
     Dates: start: 202104, end: 202104
  3. PRAZINE (PROMAZINE HYDROCHLORIDE) [Suspect]
     Active Substance: PROMAZINE HYDROCHLORIDE
     Dosage: 1000 MG
     Route: 048
     Dates: start: 202104, end: 202104

REACTIONS (2)
  - Suicide attempt [Unknown]
  - Intentional overdose [Unknown]

NARRATIVE: CASE EVENT DATE: 202104
